FAERS Safety Report 9096061 (Version 1)
Quarter: 2013Q1

REPORT INFORMATION
  Report Type: Spontaneous
  Country: AU (occurrence: AU)
  Receive Date: 20130207
  Receipt Date: 20130207
  Transmission Date: 20140127
  Serious: Yes (Other)
  Sender: FDA-Public Use
  Company Number: AU-ROCHE-1187186

PATIENT
  Sex: 0

DRUGS (4)
  1. PEGASYS [Suspect]
     Indication: PRODUCT USED FOR UNKNOWN INDICATION
     Route: 065
  2. PEGASYS [Suspect]
     Dosage: DRUG REDUCED
     Route: 065
  3. RIBAVIRIN [Concomitant]
     Route: 065
  4. RIBAVIRIN [Concomitant]
     Route: 065

REACTIONS (4)
  - Hepatitis C [Unknown]
  - Hepatic cirrhosis [Unknown]
  - Neutropenia [Unknown]
  - Anaemia [Unknown]
